FAERS Safety Report 4585794-7 (Version None)
Quarter: 2005Q1

REPORT INFORMATION
  Report Type: 
  Country: None (occurrence: None)
  Receive Date: 20050125
  Receipt Date: 20040917
  Transmission Date: 20050727
  Serious: No
  Sender: FDA-Public Use
  Company Number: USA040978632

PATIENT
  Age: 87 Year
  Sex: Male
  Weight: 65 kg

DRUGS (2)
  1. FORTEO [Suspect]
     Indication: OSTEOPOROSIS
     Dosage: 20 UG/1 DAY
     Dates: start: 20040913, end: 20040917
  2. SOTALOL HCL [Concomitant]

REACTIONS (2)
  - ERYTHEMA [None]
  - PRURITUS [None]
